FAERS Safety Report 22696606 (Version 4)
Quarter: 2024Q2

REPORT INFORMATION
  Report Type: Spontaneous
  Country: CA (occurrence: CA)
  Receive Date: 20230712
  Receipt Date: 20240509
  Transmission Date: 20240716
  Serious: Yes (Other)
  Sender: FDA-Public Use
  Company Number: CA-PFIZER INC-202300243389

PATIENT
  Age: 6 Year
  Sex: Male

DRUGS (2)
  1. SOMATROPIN [Suspect]
     Active Substance: SOMATROPIN
     Indication: Short stature
     Dosage: 0.7 MG, 6 DAYS PER WEEK
     Route: 058
     Dates: start: 20160930, end: 202306
  2. SOMATROPIN [Suspect]
     Active Substance: SOMATROPIN
     Dosage: 0.7 MG, 6 DAYS PER WEEK
     Route: 058
     Dates: start: 20231008, end: 20240210

REACTIONS (1)
  - Tonsillar disorder [Unknown]
